FAERS Safety Report 8126020-1 (Version None)
Quarter: 2012Q1

REPORT INFORMATION
  Report Type: 
  Country: None (occurrence: None)
  Receive Date: 20120209
  Receipt Date: 20111207
  Transmission Date: 20120608
  Serious: No
  Sender: FDA-Public Use
  Company Number: US-BAUSCH-2011BL008672

PATIENT
  Age: 35 Year
  Sex: Female

DRUGS (7)
  1. LOTEMAX [Concomitant]
     Route: 047
     Dates: start: 20110921, end: 20111102
  2. REFRESH, PRESERVATIVE FREE [Concomitant]
     Indication: DRY EYE
     Route: 047
     Dates: start: 20110915
  3. LOTEMAX [Suspect]
     Indication: POSTOPERATIVE CARE
     Route: 047
     Dates: start: 20111103, end: 20111205
  4. ASCORBIC ACID [Concomitant]
  5. LOTEMAX [Concomitant]
     Route: 047
     Dates: start: 20111103
  6. RESTASIS [Concomitant]
     Indication: DRY EYE
     Route: 047
     Dates: start: 20110921
  7. LACRI-LUBE [Concomitant]

REACTIONS (1)
  - GIANT PAPILLARY CONJUNCTIVITIS [None]
